FAERS Safety Report 9855920 (Version 3)
Quarter: 2014Q1

REPORT INFORMATION
  Report Type: Spontaneous
  Country: DE (occurrence: DE)
  Receive Date: 20140130
  Receipt Date: 20140326
  Transmission Date: 20141002
  Serious: Yes (Life-Threatening, Hospitalization)
  Sender: FDA-Public Use
  Company Number: PHHY2014DE009420

PATIENT
  Age: 74 Year
  Sex: Male
  Weight: 70 kg

DRUGS (4)
  1. CERTICAN [Suspect]
     Indication: RENAL TRANSPLANT
     Dosage: (1.5 MG AND 1.75MG) BID
     Route: 048
  2. CELLCEPT [Concomitant]
     Indication: RENAL TRANSPLANT
     Dosage: (0.5MG AND 0.5) BID
     Route: 048
  3. ATACAND [Concomitant]
     Dosage: UNK UKN, UNK
  4. PREDNISOLONE [Concomitant]
     Dosage: UNK UKN, UNK

REACTIONS (27)
  - Acute respiratory distress syndrome [Recovering/Resolving]
  - Alveolitis allergic [Recovering/Resolving]
  - Interstitial lung disease [Recovering/Resolving]
  - Somnolence [Unknown]
  - Venous occlusion [Unknown]
  - Respiratory disorder [Unknown]
  - Respiratory failure [Unknown]
  - Delirium [Not Recovered/Not Resolved]
  - Lung infiltration [Unknown]
  - Acute respiratory failure [Unknown]
  - Renal failure chronic [Unknown]
  - Mesangioproliferative glomerulonephritis [Unknown]
  - Hyperthyroidism [Unknown]
  - Vasodilatation [Unknown]
  - Diverticulum [Unknown]
  - Colitis ulcerative [Unknown]
  - Tachypnoea [Unknown]
  - Benign prostatic hyperplasia [Unknown]
  - Dehydration [Unknown]
  - Septic encephalopathy [Unknown]
  - Sepsis [Unknown]
  - Dyspnoea [Unknown]
  - Pneumocystis jirovecii pneumonia [Unknown]
  - Pyrexia [Unknown]
  - Pneumonia [Unknown]
  - Pseudomonas infection [Unknown]
  - Leukopenia [Unknown]
